FAERS Safety Report 8014892-0 (Version None)
Quarter: 2011Q4

REPORT INFORMATION
  Report Type: 
  Country: None (occurrence: None)
  Receive Date: 20111229
  Receipt Date: 20111219
  Transmission Date: 20120403
  Serious: Yes (Other)
  Sender: FDA-Public Use
  Company Number: US-RB-035895-11

PATIENT
  Age: 24 Year
  Sex: Male

DRUGS (1)
  1. SUBOXONE PILLS [Suspect]
     Indication: PRODUCT USED FOR UNKNOWN INDICATION
     Dosage: UNKNOWN
     Route: 065
     Dates: end: 20111201

REACTIONS (2)
  - DRUG DIVERSION [None]
  - LOSS OF CONSCIOUSNESS [None]
